FAERS Safety Report 9080161 (Version 1)
Quarter: 2013Q1

REPORT INFORMATION
  Report Type: Spontaneous
  Country: US (occurrence: US)
  Receive Date: 20130130
  Receipt Date: 20130130
  Transmission Date: 20140127
  Serious: No
  Sender: FDA-Public Use
  Company Number: US-BAYER-2013-008211

PATIENT
  Age: 80 Year
  Sex: Female
  Weight: 47 kg

DRUGS (7)
  1. ALEVE CAPLET/TABLET,MIDOL EXTENDED RELIEF CAPLET [Suspect]
     Indication: NASOPHARYNGITIS
     Dosage: 1 DF, PRN
     Route: 048
  2. METFORMIN [Concomitant]
     Dosage: UNK
     Dates: end: 20130109
  3. CALCIUM [Concomitant]
  4. PRAVASTATIN [Concomitant]
  5. DILATIN [Concomitant]
  6. BENAZEPRIL [Concomitant]
  7. PHENOBARBITAL [PHENOBARBITAL] [Concomitant]

REACTIONS (2)
  - Epistaxis [Recovered/Resolved]
  - Abdominal pain upper [Not Recovered/Not Resolved]
